FAERS Safety Report 6525393-0 (Version None)
Quarter: 2010Q1

REPORT INFORMATION
  Report Type: 
  Country: None (occurrence: None)
  Receive Date: 20100104
  Receipt Date: 20091222
  Transmission Date: 20100710
  Serious: Yes (Hospitalization, Other)
  Sender: FDA-Public Use
  Company Number: NO-ELI_LILLY_AND_COMPANY-NO200911000482

PATIENT
  Sex: Male

DRUGS (8)
  1. OLANZAPINE [Suspect]
     Indication: MAJOR DEPRESSION
     Dosage: 5 MG, DAILY (1/D)
     Route: 065
     Dates: end: 20090201
  2. VIVAL [Concomitant]
     Indication: SEDATION
     Dosage: 5 MG, 2/D
     Route: 065
  3. CIPROXIN [Concomitant]
     Indication: BALANITIS
     Dosage: 500 MG, 2/D
     Route: 065
     Dates: start: 20090219, end: 20090304
  4. EFFEXOR [Concomitant]
     Indication: MAJOR DEPRESSION
     Dosage: 75 MG, AS NEEDED
     Route: 065
  5. REMERON [Concomitant]
     Indication: MAJOR DEPRESSION
     Dosage: 30 MG, DAILY (1/D)
     Route: 065
  6. DUPHALAC [Concomitant]
     Indication: CONSTIPATION
     Dosage: 15 ML, 2/D
     Route: 065
  7. IMOVANE [Concomitant]
     Indication: SLEEP DISORDER
     Dosage: 7.5 MG, DAILY (1/D)
     Route: 065
  8. VALPROATE SODIUM [Concomitant]
     Indication: EPILEPSY
     Dates: start: 20090220, end: 20090221

REACTIONS (2)
  - DRUG INTERACTION [None]
  - SEROTONIN SYNDROME [None]
